FAERS Safety Report 6623429-X (Version None)
Quarter: 2010Q1

REPORT INFORMATION
  Report Type: 
  Country: None (occurrence: None)
  Receive Date: 20100304
  Receipt Date: 20100223
  Transmission Date: 20100710
  Serious: Yes (Death)
  Sender: FDA-Public Use
  Company Number: 007683

PATIENT
  Sex: Male

DRUGS (1)
  1. NEUPRO [Suspect]

REACTIONS (1)
  - DEATH [None]
